FAERS Safety Report 7499456-X (Version None)
Quarter: 2011Q2

REPORT INFORMATION
  Report Type: 
  Country: None (occurrence: None)
  Receive Date: 20110524
  Receipt Date: 20110517
  Transmission Date: 20111010
  Serious: Yes (Other)
  Sender: FDA-Public Use
  Company Number: PHHY2011CN42909

PATIENT
  Sex: Female

DRUGS (2)
  1. CEPHALOSPORINES [Concomitant]
  2. PARLODEL [Suspect]
     Dosage: 2 DF, 1 TABLET/12 HOURS
     Route: 048
     Dates: start: 20110514, end: 20110515

REACTIONS (5)
  - GAIT DISTURBANCE [None]
  - VOMITING [None]
  - ARTHRALGIA [None]
  - CONVULSION [None]
  - ABASIA [None]
